FAERS Safety Report 5506025-7 (Version None)
Quarter: 2007Q4

REPORT INFORMATION
  Report Type: 
  Country: None (occurrence: None)
  Receive Date: 20071105
  Receipt Date: 20071029
  Transmission Date: 20080405
  Serious: Yes (Hospitalization)
  Sender: FDA-Public Use
  Company Number: NL-AVENTIS-200614126GDDC

PATIENT
  Age: 73 Year
  Sex: Female

DRUGS (3)
  1. DOCETAXEL [Suspect]
     Indication: NON-SMALL CELL LUNG CANCER
     Route: 042
     Dates: start: 20060412, end: 20060412
  2. CARBOPLATIN [Suspect]
     Indication: NON-SMALL CELL LUNG CANCER
     Route: 042
     Dates: start: 20060412, end: 20060412
  3. CODE UNBROKEN [Suspect]
     Indication: NON-SMALL CELL LUNG CANCER
     Dosage: DOSE: 2 CAPSULES
     Route: 048
     Dates: start: 20060323, end: 20060412

REACTIONS (3)
  - HYPOKALAEMIA [None]
  - NAUSEA [None]
  - VOMITING [None]
